FAERS Safety Report 7819373-2 (Version None)
Quarter: 2011Q4

REPORT INFORMATION
  Report Type: 
  Country: None (occurrence: None)
  Receive Date: 20111018
  Receipt Date: 20110624
  Transmission Date: 20120403
  Serious: No
  Sender: FDA-Public Use
  Company Number: US-ASTRAZENECA-2010SE55905

PATIENT
  Age: 55 Year
  Sex: Female

DRUGS (3)
  1. NEXIUM [Suspect]
     Route: 048
  2. SEROQUEL [Suspect]
     Route: 048
  3. SYMBICORT [Suspect]
     Dosage: 80/4.5 MCG DAILY
     Route: 055

REACTIONS (2)
  - HERNIA [None]
  - NASOPHARYNGITIS [None]
